FAERS Safety Report 8802378 (Version 1)
Quarter: 2012Q4

REPORT INFORMATION
  Report Type: 
  Country: RW (occurrence: RW)
  Receive Date: 20120921
  Receipt Date: 20120921
  Transmission Date: 20130627
  Serious: Yes (Death)
  Sender: FDA-Public Use
  Company Number: PHHY2010RW094546

PATIENT
  Sex: Male

DRUGS (1)
  1. GLIVEC [Suspect]
     Dates: start: 20090803

REACTIONS (8)
  - Lymphadenitis [Fatal]
  - Pyrexia [Fatal]
  - Dyspnoea [Fatal]
  - Swelling [Fatal]
  - Ulcer [Fatal]
  - Dysphagia [Fatal]
  - White blood cell count increased [Fatal]
  - Necrosis [Fatal]
